FAERS Safety Report 17224703 (Version 1)
Quarter: 2020Q1

REPORT INFORMATION
  Report Type: Spontaneous
  Country: ES (occurrence: ES)
  Receive Date: 20200102
  Receipt Date: 20200102
  Transmission Date: 20200409
  Serious: Yes (Hospitalization)
  Sender: FDA-Public Use
  Company Number: ES-MYLANLABS-2019M1131490

PATIENT
  Age: 86 Year
  Sex: Male
  Weight: 70 kg

DRUGS (3)
  1. OXCARBAZEPINA [Concomitant]
     Active Substance: OXCARBAZEPINE
     Indication: EPILEPSY
     Dosage: 300 MILLIGRAM, BID
     Route: 048
     Dates: start: 20140618
  2. LEVETIRACETAM. [Suspect]
     Active Substance: LEVETIRACETAM
     Indication: EPILEPSY
     Dosage: 3500 MILLIGRAM, QD (1500-1000-500)
     Route: 048
     Dates: start: 20190909
  3. LEVODOPA-CARBIDOPA [Concomitant]
     Active Substance: CARBIDOPA\LEVODOPA
     Indication: PARKINSON^S DISEASE
     Dosage: 1 DOSAGE FORM, Q8H
     Route: 048
     Dates: start: 20140618

REACTIONS (4)
  - Somnolence [Unknown]
  - Renal impairment [Unknown]
  - Dizziness [Unknown]
  - Upper respiratory tract infection [Unknown]

NARRATIVE: CASE EVENT DATE: 20190910
